FAERS Safety Report 20485845 (Version 2)
Quarter: 2022Q1

REPORT INFORMATION
  Report Type: Spontaneous
  Country: PT (occurrence: PT)
  Receive Date: 20220217
  Receipt Date: 20220318
  Transmission Date: 20220424
  Serious: Yes (Other)
  Sender: FDA-Public Use
  Company Number: PT-NOVARTISPH-NVSC2022PT011601

PATIENT
  Sex: Male

DRUGS (3)
  1. BEOVU [Suspect]
     Active Substance: BROLUCIZUMAB-DBLL
     Indication: Product used for unknown indication
     Dosage: UNK
     Route: 065
     Dates: start: 20210423
  2. BEOVU [Suspect]
     Active Substance: BROLUCIZUMAB-DBLL
     Dosage: UNK
     Route: 065
     Dates: start: 20210827
  3. BEOVU [Suspect]
     Active Substance: BROLUCIZUMAB-DBLL
     Dosage: UNK (THIRD INJECTION) (AT THE END OF NOVEMBER)
     Route: 065
     Dates: start: 20211112

REACTIONS (9)
  - Choroidal neovascularisation [Unknown]
  - Iris adhesions [Unknown]
  - Keratic precipitates [Unknown]
  - Iridocyclitis [Recovered/Resolved]
  - Ocular hyperaemia [Unknown]
  - Chorioretinitis [Recovered/Resolved]
  - Vitritis [Recovered/Resolved]
  - Eye inflammation [Recovered/Resolved]
  - Ocular discomfort [Unknown]
